FAERS Safety Report 26107186 (Version 1)
Quarter: 2025Q4

REPORT INFORMATION
  Report Type: Report from Study
  Country: CA (occurrence: CA)
  Receive Date: 20251201
  Receipt Date: 20251201
  Transmission Date: 20260118
  Serious: Yes (Hospitalization)
  Sender: TEVA
  Company Number: CA-TEVA-VS-3396985

PATIENT
  Age: 19 Year
  Sex: Female

DRUGS (5)
  1. SUMATRIPTAN [Suspect]
     Active Substance: SUMATRIPTAN
     Indication: Product used for unknown indication
     Dosage: DOSE FORM : NOT SPECIFIED
     Route: 065
  2. EPTINEZUMAB [Suspect]
     Active Substance: EPTINEZUMAB
     Indication: Migraine
     Dosage: ROUTE OF ADMINISTRATION : INTRAVENOUS DRIP
     Route: 065
  3. EPTINEZUMAB [Suspect]
     Active Substance: EPTINEZUMAB
     Indication: Migraine
     Dosage: ROUTE OF ADMINISTRATION : INTRAVENOUS DRIP
     Route: 065
  4. ZOPICLONE [Suspect]
     Active Substance: ZOPICLONE
     Indication: Product used for unknown indication
     Route: 065
  5. AMPHETAMINE\DEXTROAMPHETAMINE [Suspect]
     Active Substance: AMPHETAMINE\DEXTROAMPHETAMINE
     Indication: Product used for unknown indication
     Dosage: AMPHETAMINE ASPARTATE/AMPHETAMINE SULFATE/DEXTROAMPHETAMINE SACCHARATE/DEXTROAMPHETAMINE SULFATE
     Route: 065

REACTIONS (2)
  - Intentional self-injury [Unknown]
  - Intentional overdose [Unknown]
